FAERS Safety Report 7987528-2 (Version None)
Quarter: 2011Q4

REPORT INFORMATION
  Report Type: 
  Country: None (occurrence: None)
  Receive Date: 20111216
  Receipt Date: 20111207
  Transmission Date: 20120403
  Serious: Yes (Hospitalization)
  Sender: FDA-Public Use
  Company Number: PHHO2011GB020730

PATIENT
  Sex: Female
  Weight: 60 kg

DRUGS (1)
  1. DICLOFENAC SODIUM [Suspect]
     Indication: OSTEOARTHRITIS
     Dosage: 100 MG, QD
     Route: 048
     Dates: start: 20000704, end: 20110922

REACTIONS (6)
  - PHOTOPHOBIA [None]
  - HEADACHE [None]
  - DIARRHOEA [None]
  - VOMITING [None]
  - NAUSEA [None]
  - TRANSIENT ISCHAEMIC ATTACK [None]
